FAERS Safety Report 7226641-4 (Version None)
Quarter: 2011Q1

REPORT INFORMATION
  Report Type: 
  Country: None (occurrence: None)
  Receive Date: 20110105
  Receipt Date: 20101229
  Transmission Date: 20110831
  Serious: Yes (Other)
  Sender: FDA-Public Use
  Company Number: CIP10003198

PATIENT
  Age: 68 Year
  Sex: Female

DRUGS (4)
  1. XANAX [Concomitant]
  2. COMBINATIONS OF VITAMINS [Concomitant]
  3. HORMONES NOS [Concomitant]
  4. ACTONEL [Suspect]
     Dosage: UNKNOWN DOSAGE/REGIMEN, ORAL
     Route: 048

REACTIONS (4)
  - OSTEOMYELITIS BACTERIAL [None]
  - PAIN IN JAW [None]
  - TOOTH LOSS [None]
  - DEVICE BREAKAGE [None]
